FAERS Safety Report 14701652 (Version 3)
Quarter: 2018Q2

REPORT INFORMATION
  Report Type: Spontaneous
  Country: CO (occurrence: CO)
  Receive Date: 20180331
  Receipt Date: 20180413
  Transmission Date: 20180711
  Serious: Yes (Other)
  Sender: FDA-Public Use
  Company Number: CO-AUROBINDO-AUR-APL-2018-017004

PATIENT
  Age: 29 Year
  Sex: Female

DRUGS (3)
  1. LEVOTHYROXINE. [Concomitant]
     Active Substance: LEVOTHYROXINE
     Indication: HYPOTHYROIDISM
     Dosage: 75 MICROGRAM
     Route: 048
  2. EMTRICITABINE AND TENOFOVIR [Suspect]
     Active Substance: EMTRICITABINE\TENOFOVIR
     Indication: PROPHYLAXIS
     Dosage: 200/300 MG
     Route: 048
     Dates: start: 20180228
  3. ESTRADIOL VALERATE W/NORETHISTERONE [Concomitant]
     Indication: CONTRACEPTION
     Route: 030

REACTIONS (6)
  - Pruritus [Unknown]
  - Rash [Unknown]
  - Diarrhoea [Unknown]
  - Vomiting [Unknown]
  - Nausea [Unknown]
  - Judgement impaired [Recovered/Resolved]

NARRATIVE: CASE EVENT DATE: 20180228
